FAERS Safety Report 9866091 (Version 1)
Quarter: 2014Q1

REPORT INFORMATION
  Report Type: Spontaneous
  Country: US (occurrence: US)
  Receive Date: 20140203
  Receipt Date: 20140203
  Transmission Date: 20141002
  Serious: No
  Sender: FDA-Public Use
  Company Number: US-ALLERGAN-1317331US

PATIENT
  Sex: Female

DRUGS (3)
  1. RESTASIS [Suspect]
     Indication: PRODUCT USED FOR UNKNOWN INDICATION
     Route: 047
  2. BONIVA [Concomitant]
     Indication: PRODUCT USED FOR UNKNOWN INDICATION
  3. SYNTHROID [Concomitant]
     Indication: PRODUCT USED FOR UNKNOWN INDICATION

REACTIONS (1)
  - Eye swelling [Unknown]
